FAERS Safety Report 9170823 (Version 1)
Quarter: 2013Q1

REPORT INFORMATION
  Report Type: Spontaneous
  Country: US (occurrence: US)
  Receive Date: 20130319
  Receipt Date: 20130319
  Transmission Date: 20140127
  Serious: No
  Sender: FDA-Public Use
  Company Number: US-BAYER-2013-033543

PATIENT
  Sex: Female

DRUGS (1)
  1. ALEVE TABLET [Suspect]
     Dosage: 1 DF, OTHER
     Route: 048
     Dates: start: 201212

REACTIONS (2)
  - Blood pressure increased [None]
  - Incorrect drug administration duration [None]
